FAERS Safety Report 7742595-6 (Version None)
Quarter: 2011Q3

REPORT INFORMATION
  Report Type: 
  Country: None (occurrence: None)
  Receive Date: 20110912
  Receipt Date: 20110905
  Transmission Date: 20111222
  Serious: Yes (Hospitalization, Other)
  Sender: FDA-Public Use
  Company Number: PHHY2011BR79650

PATIENT
  Sex: Female

DRUGS (4)
  1. TEGRETOL [Suspect]
     Dosage: 1 DF, BID
     Dates: start: 20090101
  2. NEUROLINE [Concomitant]
     Dosage: UNK UKN, UNK
     Dates: start: 20090101
  3. TEGRETOL [Suspect]
     Indication: SYNCOPE
     Dosage: 1 DF, DAILY
     Dates: start: 19930101, end: 20090101
  4. PAMELOR [Concomitant]
     Dosage: UNK
     Dates: start: 20090101

REACTIONS (7)
  - FALL [None]
  - NERVOUSNESS [None]
  - INCORRECT DOSE ADMINISTERED [None]
  - HEAD INJURY [None]
  - LIMB DISCOMFORT [None]
  - CEREBROVASCULAR ACCIDENT [None]
  - INTERVERTEBRAL DISC PROTRUSION [None]
